FAERS Safety Report 9787533 (Version 2)
Quarter: 2014Q1

REPORT INFORMATION
  Report Type: Spontaneous
  Country: US (occurrence: None)
  Receive Date: 20131224
  Receipt Date: 20140116
  Transmission Date: 20141002
  Serious: Yes (Other)
  Sender: FDA-Public Use
  Company Number: AUR-APL-2013-10547

PATIENT
  Age: 49 Year
  Sex: Female
  Weight: 58.97 kg

DRUGS (5)
  1. GABAPENTIN [Suspect]
     Indication: NEURALGIA
     Dosage: 900 MG (300 MG, 3 IN 1 D), ORAL
     Route: 048
     Dates: start: 201309, end: 20131117
  2. MORPHINE (MORPHINE) (UNKNOWN) (MORPHINE) [Concomitant]
  3. VALIUM (DIAZEPAM) [Concomitant]
  4. AMBIEN (ZOLPIDEM TARTRATE) [Concomitant]
  5. AMITRIPTYLINE (AMITRIPTYLINE) [Concomitant]

REACTIONS (12)
  - Oropharyngeal pain [None]
  - Cough [None]
  - Vomiting [None]
  - Dental caries [None]
  - Paraesthesia [None]
  - Nerve compression [None]
  - Middle insomnia [None]
  - Grip strength decreased [None]
  - Sleep disorder [None]
  - Rash [None]
  - Therapeutic response unexpected [None]
  - Paraesthesia [None]
